FAERS Safety Report 19943295 (Version 1)
Quarter: 2021Q4

REPORT INFORMATION
  Report Type: Spontaneous
  Country: US (occurrence: US)
  Receive Date: 20211011
  Receipt Date: 20211011
  Transmission Date: 20220304
  Serious: No
  Sender: FDA-Public Use
  Company Number: US-INTRA-CELLULAR THERAPIES, INC.-2021ICT00399

PATIENT
  Age: 33 Year
  Sex: Male

DRUGS (1)
  1. CAPLYTA [Suspect]
     Active Substance: LUMATEPERONE
     Indication: Schizophrenia
     Dosage: 42 MG, 1X/DAY
     Route: 048

REACTIONS (6)
  - Pyrexia [Unknown]
  - Hiccups [Unknown]
  - Somnolence [Unknown]
  - Nausea [Unknown]
  - Drooling [Unknown]
  - Vomiting [Unknown]
